FAERS Safety Report 10073690 (Version 1)
Quarter: 2014Q2

REPORT INFORMATION
  Report Type: Spontaneous
  Country: US (occurrence: US)
  Receive Date: 20140411
  Receipt Date: 20140411
  Transmission Date: 20141212
  Serious: Yes (Other)
  Sender: FDA-Public Use
  Company Number: US-LUNDBECK-DKLU1098997

PATIENT
  Age: 45 Year
  Sex: Female

DRUGS (5)
  1. SABRIL     (TABLET) [Suspect]
     Indication: TEMPORAL LOBE EPILEPSY
     Route: 048
     Dates: start: 20110118
  2. SABRIL     (TABLET) [Suspect]
     Indication: EPILEPSY
  3. KEPPRA [Concomitant]
     Indication: PRODUCT USED FOR UNKNOWN INDICATION
  4. DIAMOX [Concomitant]
     Indication: PRODUCT USED FOR UNKNOWN INDICATION
  5. PRIMIDONE [Concomitant]
     Indication: PRODUCT USED FOR UNKNOWN INDICATION

REACTIONS (2)
  - Nephrolithiasis [Unknown]
  - Postmenopausal haemorrhage [Unknown]
